FAERS Safety Report 9819609 (Version 1)
Quarter: 2014Q1

REPORT INFORMATION
  Report Type: Spontaneous
  Country: US (occurrence: US)
  Receive Date: 20140115
  Receipt Date: 20140115
  Transmission Date: 20141002
  Serious: Yes (Hospitalization, Other)
  Sender: FDA-Public Use
  Company Number: CHPA2014US000821

PATIENT
  Age: 90 Year
  Sex: Female

DRUGS (1)
  1. BUCKLEY^S UNKNOWN [Suspect]
     Indication: COUGH
     Dosage: 1 TSP, Q4H PRN
     Route: 065

REACTIONS (2)
  - Pulmonary congestion [Recovering/Resolving]
  - Cough [Recovering/Resolving]
